FAERS Safety Report 15159161 (Version 2)
Quarter: 2018Q4

REPORT INFORMATION
  Report Type: Spontaneous
  Country: US (occurrence: US)
  Receive Date: 20180718
  Receipt Date: 20181213
  Transmission Date: 20190204
  Serious: No
  Sender: FDA-Public Use
  Company Number: US-ASTRAZENECA-2018SE81859

PATIENT
  Age: 28024 Day
  Sex: Female
  Weight: 51.3 kg

DRUGS (2)
  1. BYDUREON BCISE [Suspect]
     Active Substance: EXENATIDE
     Indication: TYPE 2 DIABETES MELLITUS
     Route: 058
     Dates: start: 20181008
  2. BYETTA [Suspect]
     Active Substance: EXENATIDE
     Dosage: 5 UG
     Route: 065

REACTIONS (7)
  - Circumstance or information capable of leading to device use error [Unknown]
  - Device defective [Unknown]
  - Injection site extravasation [Unknown]
  - Underdose [Unknown]
  - Injection site haemorrhage [Recovered/Resolved]
  - Device use error [Unknown]
  - Blood glucose increased [Unknown]

NARRATIVE: CASE EVENT DATE: 20181119
